FAERS Safety Report 19109205 (Version 1)
Quarter: 2021Q2

REPORT INFORMATION
  Report Type: Spontaneous
  Country: VN (occurrence: VN)
  Receive Date: 20210409
  Receipt Date: 20210409
  Transmission Date: 20210717
  Serious: Yes (Other)
  Sender: FDA-Public Use
  Company Number: VN-ROCHE-2806544

PATIENT
  Age: 82 Year
  Sex: Male

DRUGS (3)
  1. NICARDIPINE [Concomitant]
     Active Substance: NICARDIPINE
     Indication: PRODUCT USED FOR UNKNOWN INDICATION
     Dosage: IV INFUSION 5 MG/HOUR.
     Route: 065
  2. NICARDIPINE [Concomitant]
     Active Substance: NICARDIPINE
     Dosage: IV INFUSION 10 MG/HOUR.
     Route: 065
     Dates: start: 20110328
  3. ACTILYSE [Suspect]
     Active Substance: ALTEPLASE
     Indication: CEREBROVASCULAR ACCIDENT
     Dosage: 0.7 MG/KG, 10% IV BOLUS, 90% IV INFUSION, IN 60 MINUTES.
     Route: 065
     Dates: start: 20110328, end: 20110328

REACTIONS (4)
  - Headache [Unknown]
  - Blood pressure increased [Unknown]
  - Altered state of consciousness [Unknown]
  - NIH stroke scale score increased [Unknown]

NARRATIVE: CASE EVENT DATE: 20110328
